FAERS Safety Report 13504458 (Version 1)
Quarter: 2017Q2

REPORT INFORMATION
  Report Type: Spontaneous
  Country: US (occurrence: US)
  Receive Date: 20170502
  Receipt Date: 20170502
  Transmission Date: 20170830
  Serious: No
  Sender: FDA-Public Use
  Company Number: US-WARNER CHILCOTT-2013-002275

PATIENT
  Age: 49 Year
  Sex: Female

DRUGS (4)
  1. FEMRING [Suspect]
     Active Substance: ESTRADIOL ACETATE
     Indication: HYSTERECTOMY
     Dosage: 0.1 MG/DAY, INSERT 2 RINGS EVERY 10 WEEKS
     Route: 067
     Dates: start: 20160429
  2. TOPAMAX [Concomitant]
     Active Substance: TOPIRAMATE
     Indication: MIGRAINE
  3. FEMRING [Suspect]
     Active Substance: ESTRADIOL ACETATE
     Indication: HORMONE REPLACEMENT THERAPY
     Dosage: 2 RINGS EVERY 10 WEEKS
     Route: 067
     Dates: start: 2011
  4. BUPROPION. [Concomitant]
     Active Substance: BUPROPION
     Indication: ANXIETY

REACTIONS (7)
  - Vulvovaginal discomfort [Unknown]
  - Vulvovaginal erythema [Unknown]
  - Fungal infection [Unknown]
  - Product quality issue [Unknown]
  - Vulvovaginal pruritus [Recovered/Resolved]
  - Product colour issue [Unknown]
  - Inappropriate schedule of drug administration [Unknown]

NARRATIVE: CASE EVENT DATE: 2011
